FAERS Safety Report 16994788 (Version 1)
Quarter: 2019Q4

REPORT INFORMATION
  Report Type: Spontaneous
  Country: JP (occurrence: JP)
  Receive Date: 20191105
  Receipt Date: 20191105
  Transmission Date: 20200122
  Serious: Yes (Hospitalization)
  Sender: FDA-Public Use
  Company Number: JP-MYLANLABS-2019M1102808

PATIENT
  Sex: Male

DRUGS (1)
  1. MENDON CAPSULES 7.5MG [Suspect]
     Active Substance: CLORAZEPATE DIPOTASSIUM
     Indication: PRODUCT USED FOR UNKNOWN INDICATION
     Route: 048

REACTIONS (4)
  - Cerebral haemorrhage [Unknown]
  - Insomnia [Unknown]
  - Drug withdrawal syndrome [Recovered/Resolved]
  - Tremor [Unknown]
